FAERS Safety Report 10578090 (Version 6)
Quarter: 2015Q2

REPORT INFORMATION
  Report Type: Report from Study
  Country: KR (occurrence: KR)
  Receive Date: 20141112
  Receipt Date: 20150430
  Transmission Date: 20150821
  Serious: Yes (Hospitalization)
  Sender: FDA-Public Use
  Company Number: KR-ROCHE-1487217

PATIENT
  Age: 44 Year
  Sex: Male
  Weight: 58.3 kg

DRUGS (15)
  1. TRASTUZUMAB [Suspect]
     Active Substance: TRASTUZUMAB
     Indication: HER-2 POSITIVE GASTRIC CANCER
     Dosage: LOADING DOSE
     Route: 042
     Dates: start: 20141016, end: 20141016
  2. DEXAMETHASONE. [Concomitant]
     Active Substance: DEXAMETHASONE
     Indication: NAUSEA
     Route: 048
     Dates: start: 20141016, end: 20150201
  3. ALMAGEL-F [Concomitant]
     Indication: GASTRITIS
     Route: 048
     Dates: start: 20141016, end: 20150301
  4. CHLORHEXIDINE [Concomitant]
     Active Substance: CHLORHEXIDINE
     Indication: MUCOSAL INFLAMMATION
     Route: 048
     Dates: start: 20141016, end: 20150214
  5. DEXAMETHASONE. [Concomitant]
     Active Substance: DEXAMETHASONE
     Indication: NAUSEA
     Route: 042
     Dates: start: 20141016, end: 20150129
  6. MANNITOL. [Concomitant]
     Active Substance: MANNITOL
     Indication: TOXICITY TO VARIOUS AGENTS
     Route: 042
     Dates: start: 20141016, end: 20150129
  7. LORAZEPAM. [Concomitant]
     Active Substance: LORAZEPAM
     Indication: NAUSEA
     Route: 048
     Dates: start: 20141016, end: 20150301
  8. PALONOSETRON [Concomitant]
     Active Substance: PALONOSETRON
     Indication: NAUSEA
     Route: 042
     Dates: start: 20141016, end: 20150129
  9. DOMPERIDONE MALEATE [Concomitant]
     Active Substance: DOMPERIDONE MALEATE
     Indication: NAUSEA
     Route: 048
     Dates: start: 20141016, end: 20150301
  10. APREPITANT. [Concomitant]
     Active Substance: APREPITANT
     Indication: NAUSEA
     Route: 048
     Dates: start: 20141016, end: 20150131
  11. FUROSEMIDE. [Concomitant]
     Active Substance: FUROSEMIDE
     Indication: TOXICITY TO VARIOUS AGENTS
     Route: 042
     Dates: start: 20141016, end: 20150129
  12. CHLORPHENIRAMINE [Concomitant]
     Active Substance: CHLORPHENIRAMINE
     Indication: INFUSION RELATED REACTION
     Route: 042
     Dates: start: 20141016, end: 20141016
  13. CAPECITABINE. [Suspect]
     Active Substance: CAPECITABINE
     Indication: HER-2 POSITIVE GASTRIC CANCER
     Dosage: BID
     Route: 048
     Dates: start: 20141016, end: 20141016
  14. CISPLATIN. [Suspect]
     Active Substance: CISPLATIN
     Indication: HER-2 POSITIVE GASTRIC CANCER
     Dosage: Q3S
     Route: 042
     Dates: start: 20141016, end: 20141016
  15. PLACEBO [Suspect]
     Active Substance: UNSPECIFIED INGREDIENT
     Indication: HER-2 POSITIVE GASTRIC CANCER
     Route: 042
     Dates: start: 20141016, end: 20141016

REACTIONS (1)
  - Gastric perforation [Recovered/Resolved]

NARRATIVE: CASE EVENT DATE: 20141019
